FAERS Safety Report 4984584-0 (Version None)
Quarter: 2006Q2

REPORT INFORMATION
  Report Type: 
  Country: None (occurrence: None)
  Receive Date: 20060419
  Receipt Date: 20060330
  Transmission Date: 20061013
  Serious: Yes (Other)
  Sender: FDA-Public Use
  Company Number: DE200604000724

PATIENT
  Age: 67 Year
  Sex: Female

DRUGS (3)
  1. EVISTA [Suspect]
     Indication: OSTEOPOROSIS
     Dosage: 60 MG, DAILY (1/D),
     Dates: start: 20021230, end: 20050101
  2. DEKRISTOL (COLECALCIFEROL) [Concomitant]
  3. IBUPROFEN [Concomitant]

REACTIONS (1)
  - CERVIX CARCINOMA [None]
